FAERS Safety Report 16697927 (Version 1)
Quarter: 2019Q3

REPORT INFORMATION
  Report Type: Spontaneous
  Country: US (occurrence: US)
  Receive Date: 20190626
  Receipt Date: 20190626
  Transmission Date: 20191004
  Serious: No
  Sender: FDA-Public Use
  Company Number: None

PATIENT
  Age: 59 Year
  Sex: Female

DRUGS (1)
  1. ENBREL [Suspect]
     Active Substance: ETANERCEPT
     Indication: RHEUMATOID ARTHRITIS
     Route: 058
     Dates: start: 201809

REACTIONS (8)
  - Photosensitivity reaction [None]
  - Weight increased [None]
  - Pruritus [None]
  - Eye pruritus [None]
  - Nausea [None]
  - Back disorder [None]
  - Pruritus generalised [None]
  - Rhinorrhoea [None]
